FAERS Safety Report 19030188 (Version 1)
Quarter: 2021Q1

REPORT INFORMATION
  Report Type: Spontaneous
  Country: US (occurrence: US)
  Receive Date: 20210318
  Receipt Date: 20210318
  Transmission Date: 20210420
  Serious: No
  Sender: FDA-Public Use
  Company Number: None

PATIENT
  Age: 20 Year
  Sex: Female
  Weight: 50.4 kg

DRUGS (6)
  1. MONTELUKAST SODIUM. [Suspect]
     Active Substance: MONTELUKAST SODIUM
     Indication: RHINITIS ALLERGIC
     Dosage: ?          QUANTITY:1 TABLET(S);?
     Route: 048
     Dates: start: 20210317, end: 20210318
  2. FLONASE [Concomitant]
     Active Substance: FLUTICASONE PROPIONATE
  3. ZYRTEC [Concomitant]
     Active Substance: CETIRIZINE HYDROCHLORIDE
  4. MIRENA [Concomitant]
     Active Substance: LEVONORGESTREL
  5. AUGEMENTIN [Concomitant]
  6. MUCINEX SINUS?MAS [Concomitant]

REACTIONS (2)
  - Feeling abnormal [None]
  - Confusional state [None]

NARRATIVE: CASE EVENT DATE: 20210318
